FAERS Safety Report 4690173-8 (Version None)
Quarter: 2005Q2

REPORT INFORMATION
  Report Type: 
  Country: None (occurrence: None)
  Receive Date: 20050613
  Receipt Date: 20050603
  Transmission Date: 20051028
  Serious: Yes (Hospitalization)
  Sender: FDA-Public Use
  Company Number: COV2-2005-00057

PATIENT
  Age: 50 Year
  Sex: Male

DRUGS (4)
  1. FOSRENOL [Suspect]
     Indication: HYPERPHOSPHATAEMIA
     Dosage: 1000 MG, 3X/DAY:TID, ORAL
     Route: 048
     Dates: start: 20050325
  2. ASPIRIN [Concomitant]
  3. CRESTOR/                                (ROSUVASATATIN CALCIUM) [Concomitant]
  4. GABAPENTIN [Concomitant]

REACTIONS (1)
  - SUBDURAL HAEMATOMA [None]
